FAERS Safety Report 8921193 (Version 1)
Quarter: 2012Q4

REPORT INFORMATION
  Report Type: Report from Study
  Country: FR (occurrence: FR)
  Receive Date: 20121122
  Receipt Date: 20121122
  Transmission Date: 20130627
  Serious: Yes (Other)
  Sender: FDA-Public Use
  Company Number: FR-BAXTER-2012BAX024060

PATIENT
  Age: 46 Year
  Sex: Female
  Weight: 52 kg

DRUGS (15)
  1. ENDOXAN 2000 MG, LYOPHILISAT POUR SOLUTION INJECTABLE [Suspect]
     Indication: MALIGNANT BREAST NEOPLASM
     Route: 042
     Dates: start: 20120613
  2. ENDOXAN 2000 MG, LYOPHILISAT POUR SOLUTION INJECTABLE [Suspect]
     Route: 042
     Dates: start: 20120725
  3. EPIRUBICIN [Suspect]
     Indication: MALIGNANT BREAST NEOPLASM
     Route: 042
     Dates: start: 20120613
  4. EPIRUBICIN [Suspect]
     Route: 042
     Dates: start: 20120725
  5. 5-FLUOROURACIL [Suspect]
     Indication: MALIGNANT BREAST NEOPLASM
     Route: 042
     Dates: start: 20120613
  6. 5-FLUOROURACIL [Suspect]
     Route: 042
     Dates: start: 20120725
  7. PERTUZUMAB [Suspect]
     Indication: MALIGNANT BREAST NEOPLASM
     Route: 042
     Dates: start: 20120814, end: 20120926
  8. PERTUZUMAB [Suspect]
     Route: 042
     Dates: start: 20121017
  9. TRASTUZUMAB [Suspect]
     Indication: MALIGNANT BREAST NEOPLASM
     Route: 042
     Dates: start: 20120814
  10. TRASTUZUMAB [Suspect]
     Route: 042
     Dates: start: 20120814, end: 20120926
  11. TRASTUZUMAB [Suspect]
     Route: 042
     Dates: start: 20121017
  12. DOCETAXEL [Suspect]
     Indication: MALIGNANT BREAST NEOPLASM
     Route: 042
     Dates: start: 20120815, end: 20120926
  13. CORTANCYL [Concomitant]
     Indication: DRUG USE FOR UNKNOWN INDICATION
     Route: 065
     Dates: start: 20120613
  14. VOGALENE [Concomitant]
     Indication: DRUG USE FOR UNKNOWN INDICATION
     Route: 065
     Dates: start: 20120613
  15. NEULASTA [Concomitant]
     Indication: DRUG USE FOR UNKNOWN INDICATION
     Route: 065
     Dates: start: 20120708

REACTIONS (1)
  - Pericardial effusion [Not Recovered/Not Resolved]
